FAERS Safety Report 4321206-6 (Version None)
Quarter: 2004Q1

REPORT INFORMATION
  Report Type: 
  Country: None (occurrence: None)
  Receive Date: 20040322
  Receipt Date: 20031212
  Transmission Date: 20041129
  Serious: No
  Sender: FDA-Public Use
  Company Number: A-US2003-04039

PATIENT
  Age: 61 Year
  Sex: Male

DRUGS (7)
  1. TRACLEER [Suspect]
     Indication: PULMONARY HYPERTENSION
     Dosage: 62.5 MG, BID, ORAL
     Route: 048
     Dates: start: 20031212
  2. ATENOLOL [Concomitant]
  3. ALTACE [Concomitant]
  4. NORVASC [Concomitant]
  5. LASIX [Concomitant]
  6. METFORMIN HCL [Concomitant]
  7. VITAMIN E [Concomitant]

REACTIONS (1)
  - SOMNOLENCE [None]
